FAERS Safety Report 7731837-9 (Version None)
Quarter: 2011Q3

REPORT INFORMATION
  Report Type: 
  Country: None (occurrence: None)
  Receive Date: 20110906
  Receipt Date: 20110711
  Transmission Date: 20111222
  Serious: No
  Sender: FDA-Public Use
  Company Number: US-AMGEN-USASP2011035056

PATIENT
  Age: 86 Year
  Sex: Female

DRUGS (6)
  1. CALCIUM CITRATE [Concomitant]
     Dosage: UNK
  2. ATENOLOL [Concomitant]
     Dosage: 1 MG, QD
  3. PROLIA [Suspect]
     Indication: OSTEOPOROSIS POSTMENOPAUSAL
     Dosage: 60 MG, Q6MO
     Dates: start: 20100701
  4. CENTRUM SILVER                     /01292501/ [Concomitant]
     Dosage: UNK
  5. OMEGA 3                            /00931501/ [Concomitant]
     Dosage: UNK
  6. ASPIRIN [Concomitant]
     Dosage: 1 MG, QD

REACTIONS (4)
  - URINARY INCONTINENCE [None]
  - HYPERTENSION [None]
  - CONSTIPATION [None]
  - VITAMIN D DECREASED [None]
